FAERS Safety Report 5897233-4 (Version None)
Quarter: 2008Q3

REPORT INFORMATION
  Report Type: 
  Country: None (occurrence: None)
  Receive Date: 20080923
  Receipt Date: 20080911
  Transmission Date: 20090109
  Serious: Yes (Death, Hospitalization, Other)
  Sender: FDA-Public Use
  Company Number: 52383

PATIENT
  Age: 53 Year
  Sex: Male

DRUGS (1)
  1. CYCLOSPORINE [Suspect]
     Indication: IMMUNOSUPPRESSANT DRUG THERAPY

REACTIONS (5)
  - AMYLOIDOSIS [None]
  - CACHEXIA [None]
  - CONDITION AGGRAVATED [None]
  - METASTASES TO LYMPH NODES [None]
  - METASTATIC MALIGNANT MELANOMA [None]
